FAERS Safety Report 7994551-0 (Version None)
Quarter: 2011Q4

REPORT INFORMATION
  Report Type: 
  Country: None (occurrence: None)
  Receive Date: 20111220
  Receipt Date: 20111213
  Transmission Date: 20120403
  Serious: Yes (Other)
  Sender: FDA-Public Use
  Company Number: US-JNJFOC-20111109182

PATIENT
  Sex: Male
  Weight: 79 kg

DRUGS (3)
  1. XARELTO [Suspect]
     Indication: THROMBOSIS PROPHYLAXIS
     Route: 048
     Dates: start: 20111112, end: 20111113
  2. AMIODARONE HCL [Concomitant]
     Indication: ATRIAL FIBRILLATION
  3. XARELTO [Suspect]
     Indication: HIP ARTHROPLASTY
     Route: 048
     Dates: start: 20111112, end: 20111113

REACTIONS (2)
  - HAEMATURIA [None]
  - HAEMOGLOBIN DECREASED [None]
